FAERS Safety Report 16402856 (Version 1)
Quarter: 2019Q2

REPORT INFORMATION
  Report Type: Spontaneous
  Country: IT (occurrence: IT)
  Receive Date: 20190607
  Receipt Date: 20190607
  Transmission Date: 20190711
  Serious: Yes (Hospitalization)
  Sender: FDA-Public Use
  Company Number: IT-TEVA-2019-IT-1061101

PATIENT
  Age: 46 Year
  Sex: Female

DRUGS (2)
  1. PREDNISONE. [Suspect]
     Active Substance: PREDNISONE
     Indication: IMMUNOSUPPRESSANT DRUG THERAPY
     Dosage: 25 MILLIGRAM DAILY;
     Route: 065
  2. CICLOSPORIN [Suspect]
     Active Substance: CYCLOSPORINE
     Indication: IMMUNOSUPPRESSANT DRUG THERAPY
     Dosage: 100 MILLIGRAM DAILY;
     Route: 065

REACTIONS (6)
  - Septic vasculitis [Recovered/Resolved]
  - Pathogen resistance [Recovered/Resolved]
  - Cholangitis [Recovered/Resolved]
  - Cutaneous malacoplakia [Recovered/Resolved]
  - Thrombosis [Recovered/Resolved]
  - Escherichia bacteraemia [Recovered/Resolved]
